FAERS Safety Report 24302289 (Version 4)
Quarter: 2024Q4

REPORT INFORMATION
  Report Type: Spontaneous
  Country: US (occurrence: US)
  Receive Date: 20240910
  Receipt Date: 20241217
  Transmission Date: 20250115
  Serious: Yes (Hospitalization)
  Sender: AMGEN
  Company Number: US-AMGEN-USASP2024179406

PATIENT
  Sex: Male

DRUGS (1)
  1. RAVICTI [Suspect]
     Active Substance: GLYCEROL PHENYLBUTYRATE
     Indication: Urea cycle disorder
     Dosage: 5 MILLILITER (1.1 GM/ML), TID
     Route: 048
     Dates: start: 201611

REACTIONS (4)
  - Acute respiratory failure [Unknown]
  - Metabolic encephalopathy [Unknown]
  - Hepatic fibrosis [Unknown]
  - Hyperammonaemia [Unknown]
